FAERS Safety Report 23073415 (Version 1)
Quarter: 2023Q4

REPORT INFORMATION
  Report Type: Spontaneous
  Country: US (occurrence: US)
  Receive Date: 20231017
  Receipt Date: 20231017
  Transmission Date: 20240109
  Serious: No
  Sender: FDA-Public Use
  Company Number: US-BRISTOL-MYERS SQUIBB COMPANY-2023-147647

PATIENT
  Age: 33 Year
  Sex: Female

DRUGS (3)
  1. ORENCIA [Suspect]
     Active Substance: ABATACEPT
     Indication: Rheumatoid arthritis
     Route: 058
     Dates: start: 202001
  2. ORENCIA [Suspect]
     Active Substance: ABATACEPT
     Indication: Ankylosing spondylitis
  3. ORENCIA [Suspect]
     Active Substance: ABATACEPT
     Indication: Psoriasis

REACTIONS (3)
  - Arthralgia [Recovering/Resolving]
  - Joint swelling [Recovering/Resolving]
  - Arthritis [Recovering/Resolving]
